FAERS Safety Report 9961969 (Version 2)
Quarter: 2014Q1

REPORT INFORMATION
  Report Type: Report from Study
  Country: PR (occurrence: PR)
  Receive Date: 20140305
  Receipt Date: 20140305
  Transmission Date: 20141002
  Serious: No
  Sender: FDA-Public Use
  Company Number: PR-ABBVIE-13P-131-1102494-00

PATIENT
  Age: 58 Year
  Sex: Male
  Weight: 68.1 kg

DRUGS (6)
  1. HUMIRA [Suspect]
     Indication: PSORIASIS
     Route: 058
     Dates: start: 2010, end: 20130427
  2. TRAZODONA [Concomitant]
     Indication: INSOMNIA
     Route: 048
  3. ATIVAN [Concomitant]
     Indication: MENTAL DISORDER
     Route: 048
  4. TEMAZEPAM [Concomitant]
     Indication: MENTAL DISORDER
     Route: 048
  5. PROZAC [Concomitant]
     Indication: MENTAL DISORDER
     Route: 048
  6. PROSCAR [Concomitant]
     Indication: PROSTATIC DISORDER
     Route: 048

REACTIONS (2)
  - Malaise [Unknown]
  - Urinary tract infection [Recovering/Resolving]
